FAERS Safety Report 10142899 (Version 1)
Quarter: 2014Q2

REPORT INFORMATION
  Report Type: Spontaneous
  Country: US (occurrence: US)
  Receive Date: 20140430
  Receipt Date: 20140430
  Transmission Date: 20141212
  Serious: Yes (Other)
  Sender: FDA-Public Use
  Company Number: US-JNJFOC-20140415650

PATIENT
  Age: 68 Year
  Sex: Female
  Weight: 61.24 kg

DRUGS (1)
  1. TOPAMAX [Suspect]
     Indication: ALCOHOLISM
     Route: 048
     Dates: start: 201402

REACTIONS (3)
  - Urine output decreased [Not Recovered/Not Resolved]
  - Off label use [Unknown]
  - Polydipsia [Not Recovered/Not Resolved]
